FAERS Safety Report 8802948 (Version 2)
Quarter: 2012Q4

REPORT INFORMATION
  Report Type: 
  Country: US (occurrence: US)
  Receive Date: 20120924
  Receipt Date: 20121016
  Transmission Date: 20130627
  Serious: Yes (Other)
  Sender: FDA-Public Use
  Company Number: US-PFIZER INC-2012231668

PATIENT
  Age: 60 Year
  Sex: Male
  Weight: 78.01 kg

DRUGS (4)
  1. VIAGRA [Suspect]
     Indication: ERECTILE DYSFUNCTION
     Dosage: 100 mg, as needed
     Route: 048
     Dates: start: 1996
  2. COUMADIN [Concomitant]
     Indication: CARDIAC DISORDER
     Dosage: UNK
  3. ASPIRIN [Concomitant]
     Indication: CARDIAC DISORDER
     Dosage: UNK
  4. CRESTOR [Concomitant]
     Indication: BLOOD CHOLESTEROL INCREASED
     Dosage: UNK

REACTIONS (3)
  - Venous occlusion [Unknown]
  - Blood pressure normal [Unknown]
  - Therapeutic response unexpected [Unknown]
